FAERS Safety Report 8576574-6 (Version None)
Quarter: 2012Q3

REPORT INFORMATION
  Report Type: 
  Country: None (occurrence: None)
  Receive Date: 20120807
  Receipt Date: 20120726
  Transmission Date: 20120928
  Serious: Yes (Other)
  Sender: FDA-Public Use
  Company Number: US-ROCHE-1091910

PATIENT
  Sex: Female
  Weight: 54 kg

DRUGS (10)
  1. FLUTICASONE PROPIONATE [Concomitant]
     Indication: ASTHMA
     Dosage: 115/45
     Route: 055
  2. ZYRTEC [Concomitant]
     Indication: RHINITIS ALLERGIC
     Dosage: FREQUENCY: DAILY
     Route: 048
     Dates: start: 20111116
  3. GABAPENTIN [Concomitant]
     Indication: MIGRAINE
  4. XOLAIR [Suspect]
     Indication: ASTHMA
     Route: 058
     Dates: start: 20120312, end: 20120723
  5. XOLAIR [Suspect]
     Route: 058
     Dates: start: 20120312, end: 20120723
  6. MONTELUKAST [Concomitant]
     Indication: ASTHMA
     Route: 048
  7. ZANTAC [Concomitant]
     Indication: GASTROOESOPHAGEAL REFLUX DISEASE
     Route: 048
  8. ALBUTEROL [Concomitant]
     Indication: ASTHMA
     Route: 055
  9. MAXALT [Concomitant]
     Indication: MIGRAINE
  10. PRILOSEC [Concomitant]
     Indication: GASTROOESOPHAGEAL REFLUX DISEASE
     Dosage: FREQUENCY: DAILY
     Route: 048

REACTIONS (2)
  - INJECTION SITE URTICARIA [None]
  - URTICARIA [None]
